FAERS Safety Report 21782447 (Version 1)
Quarter: 2022Q4

REPORT INFORMATION
  Report Type: Spontaneous
  Country: US (occurrence: None)
  Receive Date: 20221223
  Receipt Date: 20221223
  Transmission Date: 20230113
  Serious: Yes (Hospitalization, Other)
  Sender: FDA-Public Use
  Company Number: None

PATIENT
  Age: 68 Year
  Sex: Male

DRUGS (1)
  1. LISOCABTAGENE MARALEUCEL [Suspect]
     Active Substance: LISOCABTAGENE MARALEUCEL
     Indication: High-grade B-cell lymphoma
     Dosage: OTHER FREQUENCY : ONCE;?
     Route: 041
     Dates: start: 20220307, end: 20220307

REACTIONS (7)
  - Immune effector cell-associated neurotoxicity syndrome [None]
  - Depressed level of consciousness [None]
  - Confusional state [None]
  - Aphasia [None]
  - C-reactive protein increased [None]
  - Staphylococcus test positive [None]
  - Mental status changes [None]

NARRATIVE: CASE EVENT DATE: 20220321
